FAERS Safety Report 7409177-7 (Version None)
Quarter: 2011Q2

REPORT INFORMATION
  Report Type: 
  Country: None (occurrence: None)
  Receive Date: 20110412
  Receipt Date: 20110405
  Transmission Date: 20111010
  Serious: Yes (Other)
  Sender: FDA-Public Use
  Company Number: IT-ROCHE-769292

PATIENT
  Sex: Female

DRUGS (2)
  1. PEGASYS [Suspect]
     Route: 058
     Dates: start: 20110317, end: 20110331
  2. COPEGUS [Suspect]
     Route: 048
     Dates: start: 20110310, end: 20110331

REACTIONS (4)
  - MUSCULOSKELETAL PAIN [None]
  - ASTHENIA [None]
  - PRESYNCOPE [None]
  - ANAEMIA [None]
